FAERS Safety Report 7137956-2 (Version None)
Quarter: 2010Q4

REPORT INFORMATION
  Report Type: 
  Country: None (occurrence: None)
  Receive Date: 20101206
  Receipt Date: 20101130
  Transmission Date: 20110411
  Serious: Yes (Life-Threatening, Hospitalization, Other)
  Sender: FDA-Public Use
  Company Number: JP-NOVOPROD-319053

PATIENT
  Age: 70 Year
  Sex: Female
  Weight: 42 kg

DRUGS (4)
  1. NOVORAPID 30 MIX CHU FLEXPEN [Suspect]
     Indication: TYPE 2 DIABETES MELLITUS
     Dosage: UNK
     Dates: start: 20091001, end: 20091001
  2. NOVORAPID 30 MIX CHU FLEXPEN [Suspect]
     Dosage: 18-23 IU QD
     Route: 058
     Dates: start: 20050601, end: 20091014
  3. KINEDAK [Concomitant]
     Dosage: 3 TAB, QD
     Route: 048
     Dates: start: 20050101, end: 20091014
  4. NU-LOTAN [Concomitant]
     Dosage: UNK
     Dates: start: 20060501, end: 20091014

REACTIONS (6)
  - COGNITIVE DISORDER [None]
  - HYPOGLYCAEMIA [None]
  - HYPOGLYCAEMIC COMA [None]
  - HYPOGLYCAEMIC ENCEPHALOPATHY [None]
  - INTENTIONAL OVERDOSE [None]
  - SUICIDE ATTEMPT [None]
